FAERS Safety Report 23054019 (Version 1)
Quarter: 2023Q4

REPORT INFORMATION
  Report Type: Spontaneous
  Country: US (occurrence: US)
  Receive Date: 20231011
  Receipt Date: 20231011
  Transmission Date: 20240109
  Serious: No
  Sender: FDA-Public Use
  Company Number: US-009507513-2309USA006676

PATIENT
  Age: 28 Year
  Sex: Male

DRUGS (4)
  1. INVANZ [Suspect]
     Active Substance: ERTAPENEM SODIUM
     Indication: Toxicity to various agents
     Dosage: 1 GRAM
  2. HALOPERIDOL [Concomitant]
     Active Substance: HALOPERIDOL
     Indication: Suicidal behaviour
     Dosage: UNK
     Route: 048
  3. DIVALPROEX SODIUM [Concomitant]
     Active Substance: DIVALPROEX SODIUM
     Indication: Suicidal behaviour
     Dosage: UNK
     Route: 048
  4. CARNITINE [Concomitant]
     Active Substance: CARNITINE
     Indication: Hyperammonaemia
     Dosage: UNK

REACTIONS (1)
  - Off label use [Unknown]
